FAERS Safety Report 16803576 (Version 3)
Quarter: 2019Q4

REPORT INFORMATION
  Report Type: Spontaneous
  Country: FR (occurrence: FR)
  Receive Date: 20190913
  Receipt Date: 20191008
  Transmission Date: 20200122
  Serious: Yes (Hospitalization, Other)
  Sender: FDA-Public Use
  Company Number: FR-ZYDUS-040662

PATIENT
  Age: 64 Year
  Sex: Female

DRUGS (3)
  1. DICLOFENAC [Suspect]
     Active Substance: DICLOFENAC
     Indication: TENDONITIS
     Dosage: 1 TO 2 APPLICATIONS PER DAY
     Route: 003
     Dates: start: 20190519, end: 20190528
  2. DOLIPRANE [Suspect]
     Active Substance: ACETAMINOPHEN
     Indication: PAIN
     Dosage: AS NECESSARY
     Route: 048
     Dates: start: 20190507, end: 20190515
  3. BI MISSILLOR [Suspect]
     Active Substance: METRONIDAZOLE\SPIRAMYCIN
     Indication: ORAL INFECTION
     Dosage: 2 DF, QD, 1.5 M.I.I./250 MG
     Route: 048
     Dates: start: 20190507, end: 20190515

REACTIONS (2)
  - Agranulocytosis [Recovered/Resolved]
  - Anaemia [Recovered/Resolved]

NARRATIVE: CASE EVENT DATE: 20190529
